FAERS Safety Report 22660088 (Version 1)
Quarter: 2023Q2

REPORT INFORMATION
  Report Type: Spontaneous
  Country: US (occurrence: None)
  Receive Date: 20230629
  Receipt Date: 20230629
  Transmission Date: 20230721
  Serious: No
  Sender: FDA-Public Use
  Company Number: None

PATIENT

DRUGS (3)
  1. ICATIBANT ACETATE [Suspect]
     Active Substance: ICATIBANT ACETATE
  2. KALBITOR [Concomitant]
  3. RUCONEST [Concomitant]
     Route: 042
     Dates: start: 202002

REACTIONS (1)
  - Hereditary angioedema [None]
